FAERS Safety Report 7150805-1 (Version None)
Quarter: 2010Q4

REPORT INFORMATION
  Report Type: 
  Country: None (occurrence: None)
  Receive Date: 20101126
  Receipt Date: 20101123
  Transmission Date: 20110411
  Serious: Yes (Death)
  Sender: FDA-Public Use
  Company Number: 2010SP049317

PATIENT
  Age: 26 Year
  Sex: Female
  Weight: 85 kg

DRUGS (4)
  1. TEMODAL [Suspect]
     Indication: GLIOBLASTOMA
     Dosage: 180 MG, QD;
     Dates: start: 20100626, end: 20100720
  2. DEXAMETHASONE [Concomitant]
  3. SEDACID [Concomitant]
  4. PRILOSEC [Concomitant]

REACTIONS (2)
  - OVERDOSE [None]
  - PANCYTOPENIA [None]
